FAERS Safety Report 4776576-1 (Version None)
Quarter: 2005Q3

REPORT INFORMATION
  Report Type: 
  Country: None (occurrence: None)
  Receive Date: 20050923
  Receipt Date: 20050912
  Transmission Date: 20060218
  Serious: Yes (Other)
  Sender: FDA-Public Use
  Company Number: PHNR2005AU01413

PATIENT
  Age: 55 Year
  Sex: Female

DRUGS (2)
  1. MORPHINE SULFATE [Suspect]
     Indication: PAIN
     Dosage: 1 MG, QD
     Route: 042
     Dates: start: 20050721, end: 20050722
  2. VOLTAREN [Suspect]
     Dosage: UNK, ONCE/SINGLE
     Route: 054

REACTIONS (3)
  - PRURITUS GENERALISED [None]
  - SWOLLEN TONGUE [None]
  - URTICARIA [None]
